APPROVED DRUG PRODUCT: AMOXICILLIN AND CLAVULANATE POTASSIUM
Active Ingredient: AMOXICILLIN; CLAVULANATE POTASSIUM
Strength: 250MG/5ML;EQ 62.5MG BASE/5ML
Dosage Form/Route: FOR SUSPENSION;ORAL
Application: A210374 | Product #001 | TE Code: AB
Applicant: DEVA HOLDING AS
Approved: Nov 29, 2023 | RLD: No | RS: No | Type: RX